FAERS Safety Report 19455414 (Version 3)
Quarter: 2021Q3

REPORT INFORMATION
  Report Type: Spontaneous
  Country: GB (occurrence: GB)
  Receive Date: 20210623
  Receipt Date: 20210729
  Transmission Date: 20211014
  Serious: Yes (Other)
  Sender: FDA-Public Use
  Company Number: GB-LUNDBECK-DKLU3033929

PATIENT
  Age: 29 Year
  Sex: Female

DRUGS (22)
  1. CLOBAZAM. [Interacting]
     Active Substance: CLOBAZAM
     Dosage: 5 MG, QD
     Route: 065
     Dates: start: 202006, end: 202006
  2. VALPROATE SODIUM. [Interacting]
     Active Substance: VALPROATE SODIUM
     Dosage: 800 MG, BID
     Route: 048
  3. LAMOTRIGINE. [Concomitant]
     Active Substance: LAMOTRIGINE
     Indication: PRODUCT USED FOR UNKNOWN INDICATION
     Dosage: 200 MG, BID
     Route: 065
  4. EPIDYOLEX [Interacting]
     Active Substance: CANNABIDIOL
     Dosage: 180 MG, BID, (4.1 MG/KG/DAY,)
     Route: 048
     Dates: start: 202006, end: 202008
  5. CLOBAZAM. [Interacting]
     Active Substance: CLOBAZAM
     Dosage: 45 MG, QD,  (20MG/25MG)
     Route: 065
  6. CLOBAZAM. [Interacting]
     Active Substance: CLOBAZAM
     Dosage: 10 MG, QD, (NOCTE)
     Route: 065
     Dates: start: 202008
  7. CLOBAZAM. [Interacting]
     Active Substance: CLOBAZAM
     Dosage: 15 MG, QD,  (5MG/10MG)
     Route: 065
     Dates: start: 202006, end: 202006
  8. VALPROATE SODIUM. [Interacting]
     Active Substance: VALPROATE SODIUM
     Dosage: 1000 MG, QD
     Route: 048
     Dates: start: 1992
  9. EPIDYOLEX [Interacting]
     Active Substance: CANNABIDIOL
     Dosage: 220 MG, BID, (5.1 MG/KG/DAY)
     Route: 048
     Dates: start: 202008
  10. EPIDYOLEX [Interacting]
     Active Substance: CANNABIDIOL
     Dosage: 220 MG, QD, (2.55 MG/KG/DAY)
     Route: 048
     Dates: start: 202008
  11. EPIDYOLEX [Interacting]
     Active Substance: CANNABIDIOL
     Dosage: 180 MG, QD, (2.09 MG/KG/DAY)
     Route: 048
     Dates: start: 202006, end: 202008
  12. CLOBAZAM. [Interacting]
     Active Substance: CLOBAZAM
     Dosage: 5 MG, BID
     Route: 065
     Dates: start: 202006, end: 202006
  13. CLOBAZAM. [Interacting]
     Active Substance: CLOBAZAM
     Dosage: 10 MG, QD, (NOCTE)
     Route: 065
     Dates: start: 202006, end: 202007
  14. CLOBAZAM. [Interacting]
     Active Substance: CLOBAZAM
     Dosage: 7.5 MG, QD, (NOCTE)
     Route: 065
     Dates: start: 202007, end: 202008
  15. LAMOTRIGINE. [Concomitant]
     Active Substance: LAMOTRIGINE
     Dosage: 200 MG, QD
     Route: 065
  16. CLOBAZAM. [Suspect]
     Active Substance: CLOBAZAM
     Indication: ILL-DEFINED DISORDER
     Dosage: UNK, (REDUCED DOSE)
     Route: 065
     Dates: start: 202004, end: 202005
  17. CLOBAZAM. [Interacting]
     Active Substance: CLOBAZAM
     Dosage: UNK, (REDUCED DOSE)
     Route: 065
     Dates: start: 202005, end: 202006
  18. EPIDYOLEX [Interacting]
     Active Substance: CANNABIDIOL
     Dosage: 220 MG, QD, (2.55 MG/KG/DAY)
     Route: 048
     Dates: start: 20200326, end: 202006
  19. VALPROATE SODIUM. [Interacting]
     Active Substance: VALPROATE SODIUM
     Indication: LENNOX-GASTAUT SYNDROME
     Dosage: 1000 MG, BID
     Route: 048
     Dates: start: 1992
  20. VALPROATE SODIUM. [Interacting]
     Active Substance: VALPROATE SODIUM
     Dosage: 800 MG, QD
     Route: 048
  21. EPIDYOLEX [Interacting]
     Active Substance: CANNABIDIOL
     Indication: LENNOX-GASTAUT SYNDROME
     Dosage: 220 MG, BID, (5.1 MG/KG/DAY)
     Route: 048
     Dates: start: 20200326, end: 202006
  22. LAMOTRIGINE. [Concomitant]
     Active Substance: LAMOTRIGINE
     Dosage: 350 MG, QD, (150MG/200MG)
     Route: 065
     Dates: start: 202007

REACTIONS (10)
  - Vomiting [Recovered/Resolved]
  - Gait disturbance [Recovered/Resolved]
  - Drug interaction [Recovered/Resolved]
  - Overdose [Unknown]
  - Drug abuse [Unknown]
  - Alopecia [Recovered/Resolved]
  - Fatigue [Recovered/Resolved]
  - Toxicity to various agents [Recovered/Resolved]
  - Partial seizures [Recovered/Resolved]
  - Hypersomnia [Recovered/Resolved]

NARRATIVE: CASE EVENT DATE: 202004
